FAERS Safety Report 10210146 (Version 3)
Quarter: 2014Q3

REPORT INFORMATION
  Report Type: Report from Study
  Country: US (occurrence: US)
  Receive Date: 20140602
  Receipt Date: 20140821
  Transmission Date: 20150326
  Serious: No
  Sender: FDA-Public Use
  Company Number: US-VERTEX PHARMACEUTICALS INC-2014-002435

PATIENT
  Age: 6 Year
  Sex: Male
  Weight: 26 kg

DRUGS (1)
  1. IVACAFTOR [Suspect]
     Active Substance: IVACAFTOR
     Indication: CYSTIC FIBROSIS
     Dosage: 150 MG, BID
     Route: 048
     Dates: start: 20130923

REACTIONS (3)
  - Lung infection [Recovering/Resolving]
  - Staphylococcal bacteraemia [Unknown]
  - Sinus operation [Recovered/Resolved]

NARRATIVE: CASE EVENT DATE: 20140515
